FAERS Safety Report 5288120-3 (Version None)
Quarter: 2007Q2

REPORT INFORMATION
  Report Type: 
  Country: None (occurrence: None)
  Receive Date: 20070402
  Receipt Date: 20070402
  Transmission Date: 20071010
  Serious: Yes (Other)
  Sender: FDA-Public Use
  Company Number: None

PATIENT
  Sex: Male
  Weight: 81.6475 kg

DRUGS (1)
  1. ZOMETA [Suspect]

REACTIONS (3)
  - DISCOMFORT [None]
  - OSTEONECROSIS [None]
  - WOUND SECRETION [None]
